FAERS Safety Report 6339263-4 (Version None)
Quarter: 2009Q3

REPORT INFORMATION
  Report Type: 
  Country: None (occurrence: None)
  Receive Date: 20090903
  Receipt Date: 20090828
  Transmission Date: 20100115
  Serious: Yes (Life-Threatening, Other)
  Sender: FDA-Public Use
  Company Number: A0798623A

PATIENT
  Age: 67 Year
  Sex: Female
  Weight: 51.4 kg

DRUGS (2)
  1. TYKERB [Suspect]
     Dosage: 250MG UNKNOWN
     Dates: start: 20090617, end: 20090622
  2. XELODA [Suspect]
     Dosage: 1G TWICE PER DAY
     Route: 048

REACTIONS (4)
  - DIARRHOEA [None]
  - DRUG INTERACTION [None]
  - DRUG INTOLERANCE [None]
  - TREATMENT NONCOMPLIANCE [None]
